FAERS Safety Report 8504320-0 (Version None)
Quarter: 2012Q3

REPORT INFORMATION
  Report Type: 
  Country: None (occurrence: None)
  Receive Date: 20120711
  Receipt Date: 20120705
  Transmission Date: 20120928
  Serious: Yes (Other)
  Sender: FDA-Public Use
  Company Number: BR-PFIZER INC-2012161505

PATIENT
  Age: 57 Year
  Sex: Female

DRUGS (1)
  1. XALATAN [Suspect]
     Indication: CATARACT
     Dosage: 3 UG (ONE DROP IN EACH EYE), 1X/DAY
     Route: 047
     Dates: start: 20110701

REACTIONS (2)
  - UPPER LIMB FRACTURE [None]
  - FALL [None]
